FAERS Safety Report 5815478-6 (Version None)
Quarter: 2008Q3

REPORT INFORMATION
  Report Type: 
  Country: None (occurrence: None)
  Receive Date: 20080718
  Receipt Date: 20080708
  Transmission Date: 20090109
  Serious: Yes (Life-Threatening, Disabling, Other)
  Sender: FDA-Public Use
  Company Number: JP-MERCK-0805USA04587

PATIENT
  Age: 62 Year
  Sex: Male
  Weight: 69 kg

DRUGS (5)
  1. HYZAAR [Suspect]
     Indication: HYPERTENSION
     Route: 048
     Dates: start: 20080311, end: 20080512
  2. CALSLOT [Suspect]
     Indication: HYPERTENSION
     Route: 048
     Dates: start: 20050113, end: 20080525
  3. NITOROL-R [Suspect]
     Indication: ANGINA PECTORIS
     Route: 048
     Dates: start: 20051102, end: 20080525
  4. DEPAS [Suspect]
     Indication: ANXIETY
     Route: 048
     Dates: start: 20070703, end: 20080520
  5. SYAKUYAKU-KANZOTO [Suspect]
     Indication: BACK PAIN
     Route: 048
     Dates: start: 20070703, end: 20080525

REACTIONS (11)
  - ASTHENIA [None]
  - BACK PAIN [None]
  - BLOOD CREATINE PHOSPHOKINASE INCREASED [None]
  - DYSSTASIA [None]
  - GAIT DISTURBANCE [None]
  - HYPOKALAEMIA [None]
  - MUSCULAR WEAKNESS [None]
  - MYALGIA [None]
  - PAIN IN EXTREMITY [None]
  - PERIPHERAL NERVE PALSY [None]
  - PSEUDOALDOSTERONISM [None]
